FAERS Safety Report 4415008-X (Version None)
Quarter: 2004Q3

REPORT INFORMATION
  Report Type: 
  Country: None (occurrence: None)
  Receive Date: 20040804
  Receipt Date: 20040706
  Transmission Date: 20050211
  Serious: Yes (Death, Hospitalization)
  Sender: FDA-Public Use
  Company Number: US-ROCHE-373484

PATIENT
  Age: 80 Year
  Sex: Female
  Weight: 69.8 kg

DRUGS (8)
  1. CAPECITABINE [Suspect]
     Indication: RECTAL CANCER
     Dosage: TWO WEEK TREATMENT AND ONE WEEK REST. SHE RECEIVED FOUR CYCLES.
     Route: 048
     Dates: start: 20031006, end: 20031229
  2. IRINOTECAN [Suspect]
     Indication: RECTAL CANCER
     Route: 042
     Dates: start: 20031006, end: 20031222
  3. FRAGMIN [Concomitant]
     Dates: start: 20040107
  4. PYRIDOXINE [Concomitant]
     Dates: start: 20031020
  5. CELEBREX [Concomitant]
  6. NORVASC [Concomitant]
     Route: 048
  7. MYLANTA [Concomitant]
  8. TYLENOL [Concomitant]

REACTIONS (8)
  - ASTHENIA [None]
  - BACK PAIN [None]
  - BACTERIA STOOL IDENTIFIED [None]
  - DISEASE PROGRESSION [None]
  - INTERVERTEBRAL DISC PROTRUSION [None]
  - RECTAL CANCER [None]
  - RECTAL CANCER METASTATIC [None]
  - STAPHYLOCOCCAL INFECTION [None]
